FAERS Safety Report 6708975-2 (Version None)
Quarter: 2010Q2

REPORT INFORMATION
  Report Type: 
  Country: None (occurrence: None)
  Receive Date: 20100504
  Receipt Date: 20100421
  Transmission Date: 20101027
  Serious: Yes (Hospitalization, Other)
  Sender: FDA-Public Use
  Company Number: PHEH2006US05372

PATIENT
  Sex: Female
  Weight: 80.725 kg

DRUGS (12)
  1. EXJADE [Suspect]
     Indication: IRON OVERLOAD
     Dosage: 500 MG, TID
     Route: 048
     Dates: start: 20060427
  2. EXJADE [Suspect]
     Dates: start: 20060401
  3. STEROIDS NOS [Suspect]
     Dosage: UNK, UNK
     Dates: start: 20060407, end: 20060407
  4. ABILIFY [Suspect]
     Indication: SCHIZOPHRENIA, PARANOID TYPE
     Dosage: 35 MG, QHS
     Route: 048
  5. LYRICA [Concomitant]
     Dosage: 75 MG, QD
     Route: 048
  6. ALLOPURINOL [Concomitant]
     Dosage: 30 MG, QD
     Route: 048
  7. PHENERGAN [Concomitant]
     Dosage: 25 MG, PRN
     Route: 048
  8. COUMADIN [Concomitant]
     Dosage: 1 MG, QD
     Route: 048
  9. BENZTROPINE MESYLATE [Concomitant]
     Dosage: 1 MG, QD
     Route: 048
  10. LORTAB [Concomitant]
     Dosage: 10/500, PRN
     Route: 048
  11. AMBIEN [Concomitant]
     Dosage: 10 MG, QHS
     Route: 048
  12. XANAX [Concomitant]
     Dosage: 0.5 MG, PRN
     Route: 048

REACTIONS (9)
  - ABDOMINAL PAIN [None]
  - ANXIETY [None]
  - DIARRHOEA [None]
  - FEELING ABNORMAL [None]
  - NAUSEA [None]
  - NERVOUSNESS [None]
  - RENAL PAIN [None]
  - SCHIZOPHRENIA [None]
  - SICKLE CELL ANAEMIA WITH CRISIS [None]
